FAERS Safety Report 21974751 (Version 1)
Quarter: 2023Q1

REPORT INFORMATION
  Report Type: Spontaneous
  Country: US (occurrence: None)
  Receive Date: 20230208
  Receipt Date: 20230208
  Transmission Date: 20230418
  Serious: Yes (Disabling, Other)
  Sender: FDA-Public Use
  Company Number: None

PATIENT
  Age: 16 Year
  Sex: Female
  Weight: 49.5 kg

DRUGS (7)
  1. METHYLPHENIDATE HYDROCHLORIDE [Suspect]
     Active Substance: METHYLPHENIDATE HYDROCHLORIDE
     Indication: Attention deficit hyperactivity disorder
     Dosage: OTHER QUANTITY : 1 TABLET(S);?
     Route: 048
     Dates: start: 20230203, end: 20230208
  2. LAMOTRIGINE [Concomitant]
  3. BUSPIRONE [Concomitant]
     Active Substance: BUSPIRONE HYDROCHLORIDE
  4. CONCERTA [Concomitant]
     Active Substance: METHYLPHENIDATE HYDROCHLORIDE
  5. OLANZAPINE [Concomitant]
  6. VITAMIN D [Concomitant]
     Active Substance: VITAMIN D NOS
  7. FISH OIL [Concomitant]

REACTIONS (4)
  - Product substitution issue [None]
  - Therapeutic response changed [None]
  - Drug ineffective [None]
  - Anxiety [None]

NARRATIVE: CASE EVENT DATE: 20230206
